FAERS Safety Report 8140562-4 (Version None)
Quarter: 2012Q1

REPORT INFORMATION
  Report Type: 
  Country: None (occurrence: None)
  Receive Date: 20120213
  Receipt Date: 20120213
  Transmission Date: 20120608
  Serious: No
  Sender: FDA-Public Use
  Company Number: None

PATIENT
  Age: 43 Year
  Sex: Female

DRUGS (3)
  1. NORGESTREL/ETHINYL ESTRADIOL [Suspect]
     Dosage: TAKE 1 TABLET DAILY
  2. NORGESTREL/ETHINYL ESTRADIOL [Suspect]
  3. NORGESTREL/ETHINYL ESTRADIOL [Suspect]

REACTIONS (2)
  - MENSTRUATION IRREGULAR [None]
  - PRODUCT QUALITY ISSUE [None]
